FAERS Safety Report 10170613 (Version 2)
Quarter: 2014Q2

REPORT INFORMATION
  Report Type: Spontaneous
  Country: FI (occurrence: FI)
  Receive Date: 20140514
  Receipt Date: 20140620
  Transmission Date: 20141212
  Serious: Yes (Other)
  Sender: FDA-Public Use
  Company Number: FI-AMGEN-FINSP2014034492

PATIENT
  Age: 40 Year
  Sex: Female
  Weight: 95 kg

DRUGS (4)
  1. ENBREL [Suspect]
     Indication: PUSTULAR PSORIASIS
     Dosage: 25 MG, TWICE WEEKLY
     Route: 058
     Dates: start: 20060818
  2. THYROXIN [Concomitant]
     Indication: HYPOTHYROIDISM
     Dosage: 0.1 MG AT 1.5 TABLETS/DAY 4 TIMES A WEEK AND 2 TABLETS/DAY 3 TIMES A WEEK
  3. PRIMASPAN [Concomitant]
     Indication: ANTICOAGULANT THERAPY
     Dosage: 100 MG, ONCE DAILY
     Dates: start: 20131112
  4. MULTIBIONTA M [Concomitant]
     Dosage: UNK

REACTIONS (6)
  - Gestational diabetes [Recovered/Resolved]
  - Fluid retention [Recovered/Resolved]
  - Blood pressure increased [Unknown]
  - Proteinuria [Recovered/Resolved]
  - Pre-eclampsia [Recovered/Resolved]
  - Premature delivery [Unknown]
